FAERS Safety Report 5524671-1 (Version None)
Quarter: 2007Q4

REPORT INFORMATION
  Report Type: 
  Country: None (occurrence: None)
  Receive Date: 20071123
  Receipt Date: 20071113
  Transmission Date: 20080405
  Serious: Yes (Hospitalization)
  Sender: FDA-Public Use
  Company Number: US-ROCHE-522236

PATIENT
  Age: 59 Year
  Sex: Female
  Weight: 67.6 kg

DRUGS (10)
  1. PEG-INTERFERON A-2A (RO 25-8310) [Suspect]
     Route: 065
     Dates: start: 20070824, end: 20070907
  2. PEG-INTERFERON A-2A (RO 25-8310) [Suspect]
     Route: 065
     Dates: end: 20071031
  3. RIBAVIRIN [Suspect]
     Route: 065
     Dates: start: 20070824, end: 20070907
  4. RIBAVIRIN [Suspect]
     Route: 065
     Dates: end: 20071031
  5. ASPIRIN [Concomitant]
     Dosage: THE PATIENT TAKES ASPIRIN 325 MG, 1 BY MOUTH IN THE MORNING.
     Route: 048
  6. BENICAR [Concomitant]
     Dosage: THE PATIENT TAKES BENICAR 20 MG, 1 BY MOUTH DAILY.
     Route: 048
  7. FISH OIL [Concomitant]
     Dosage: THE PATIENT TAKES FISH OIL 1200 MG, 1 BY MOUTH DAILY.
     Route: 048
  8. GLIMEPIRIDE [Concomitant]
     Dosage: THE PATIENT TAKES GLIMEPIRIDE 2 MG, 1 BY MOUTH IN THE MORNING.
     Route: 048
  9. SIMVASTATIN [Concomitant]
     Dosage: THE PATIENT TAKES SIMVASTATIN 20 MG, 1 BY MOUTH IN THE EVENING.
     Route: 048
  10. TOPROL-XL [Concomitant]
     Dosage: THE PATIENT TAKES TOPROL XL 50 MG, 1 BY MOUTH IN THE MORNING.
     Route: 048

REACTIONS (2)
  - ARTERIOSCLEROSIS CORONARY ARTERY [None]
  - BLINDNESS UNILATERAL [None]
